FAERS Safety Report 12432378 (Version 1)
Quarter: 2016Q2

REPORT INFORMATION
  Report Type: Spontaneous
  Country: US (occurrence: None)
  Receive Date: 20160602
  Receipt Date: 20160602
  Transmission Date: 20160815
  Serious: Yes (Life-Threatening, Disabling, Other)
  Sender: FDA-Public Use
  Company Number: None

PATIENT
  Age: 36 Year
  Sex: Male
  Weight: 86.18 kg

DRUGS (4)
  1. GENERIC PROZAC [Concomitant]
     Active Substance: FLUOXETINE HYDROCHLORIDE
  2. ZOLPIDEM TARTRATE, 10 MG [Suspect]
     Active Substance: ZOLPIDEM TARTRATE
     Indication: INSOMNIA
     Route: 048
     Dates: start: 20160307, end: 20160601
  3. GENERIC AMBIEN [Concomitant]
  4. FLUOXETINE, 20MG [Suspect]
     Active Substance: FLUOXETINE HYDROCHLORIDE
     Indication: DEPRESSION
     Route: 048
     Dates: start: 20160307, end: 20160601

REACTIONS (6)
  - Psychotic disorder [None]
  - Abnormal behaviour [None]
  - Thinking abnormal [None]
  - Hallucination [None]
  - Condition aggravated [None]
  - Mania [None]

NARRATIVE: CASE EVENT DATE: 20160307
